FAERS Safety Report 21688105 (Version 7)
Quarter: 2024Q4

REPORT INFORMATION
  Report Type: Spontaneous
  Country: US (occurrence: US)
  Receive Date: 20221206
  Receipt Date: 20241119
  Transmission Date: 20250114
  Serious: No
  Sender: DAIICHI
  Company Number: US-DSJP-DSU-2022-143713AA

PATIENT
  Sex: Female

DRUGS (2)
  1. TURALIO [Suspect]
     Active Substance: PEXIDARTINIB HYDROCHLORIDE
     Indication: Connective tissue neoplasm
     Dosage: 200 MG
     Route: 065
  2. TURALIO [Suspect]
     Active Substance: PEXIDARTINIB HYDROCHLORIDE
     Indication: Soft tissue neoplasm
     Dosage: 2 CAPSULES 125MG, BID
     Route: 048
     Dates: start: 20200827

REACTIONS (4)
  - COVID-19 [Unknown]
  - Surgery [Unknown]
  - Incorrect dose administered [Not Recovered/Not Resolved]
  - Therapy cessation [Unknown]
